FAERS Safety Report 4940699-4 (Version None)
Quarter: 2006Q1

REPORT INFORMATION
  Report Type: 
  Country: None (occurrence: None)
  Receive Date: 20060313
  Receipt Date: 20050127
  Transmission Date: 20060701
  Serious: Yes (Hospitalization)
  Sender: FDA-Public Use
  Company Number: GB-BOEHRINGER INGELHEIM PHARMACEUTICALS, INC.-2005-UK-00155UK

PATIENT
  Sex: Female

DRUGS (26)
  1. ATROVENT [Suspect]
     Indication: BRONCHIAL HYPERACTIVITY
     Route: 055
     Dates: start: 20040201, end: 20040301
  2. BECLOMETHASONE DIPROPIONATE [Concomitant]
     Indication: BRONCHIAL HYPERACTIVITY
     Route: 055
     Dates: start: 20010601
  3. LISINOPRIL [Concomitant]
     Route: 048
     Dates: start: 20040126
  4. LISINOPRIL [Concomitant]
     Dosage: 1 AT NIGHT
     Dates: start: 20040213
  5. LANSOPRAZOLE [Concomitant]
     Indication: HIATUS HERNIA
     Route: 048
  6. PREDNISOLONE [Concomitant]
     Route: 048
  7. FUROSEMIDE [Concomitant]
     Dates: start: 20040129
  8. PROCHLORERAZINE [Concomitant]
     Dates: start: 20040113
  9. IRBESARTAN [Concomitant]
     Dates: start: 20040427
  10. LEVOCETIRIZINE [Concomitant]
     Dates: start: 20031118
  11. GALPSEUD [Concomitant]
     Dates: start: 20040825
  12. ATORVASTATIN CALCIUM [Concomitant]
     Dates: start: 20041104
  13. GLICLAZIDE [Concomitant]
     Dosage: HALF A TABLET A DAY
     Dates: start: 20041104
  14. ROSIGLITAZONE [Concomitant]
     Dates: start: 20041021
  15. FEXOFENADINE HCL [Concomitant]
     Dates: start: 20040716
  16. CEPHALEXIN [Concomitant]
     Dosage: 4 DAILY
     Dates: start: 20040924
  17. METFORMIN [Concomitant]
     Dosage: 2 DAILY
     Dates: start: 20040930
  18. METFORMIN [Concomitant]
     Dates: start: 20040930
  19. METFORMIN [Concomitant]
     Dosage: 500 MG, 1 A DAY
     Dates: start: 20040930
  20. PRAVASTATIN [Concomitant]
     Dates: start: 20040930
  21. ISPAGHULA [Concomitant]
     Dates: start: 20040413
  22. PROPERDER CREAM [Concomitant]
     Dates: start: 20040529
  23. CITALOPRAM [Concomitant]
     Dates: start: 20040902
  24. HYDROCORTISONE [Concomitant]
  25. TRIMOVATE CREAM [Concomitant]
     Dates: start: 20040401
  26. TACROLIMUS [Concomitant]
     Dates: start: 20040527

REACTIONS (12)
  - APRAXIA [None]
  - BLOOD PRESSURE INCREASED [None]
  - FEELING HOT [None]
  - MALAISE [None]
  - MELANOCYTIC NAEVUS [None]
  - OXYGEN SATURATION DECREASED [None]
  - POLYCYTHAEMIA [None]
  - RASH [None]
  - SUICIDAL IDEATION [None]
  - SWELLING [None]
  - TONGUE COATED [None]
  - WEIGHT DECREASED [None]
